FAERS Safety Report 24743706 (Version 1)
Quarter: 2024Q4

REPORT INFORMATION
  Report Type: Spontaneous
  Country: AR (occurrence: AR)
  Receive Date: 20241217
  Receipt Date: 20241217
  Transmission Date: 20250115
  Serious: Yes (Other)
  Sender: RANBAXY
  Company Number: AR-SUN PHARMACEUTICAL INDUSTRIES LTD-2024R1-485040

PATIENT

DRUGS (1)
  1. METHOTREXATE [Suspect]
     Active Substance: METHOTREXATE
     Indication: Acute lymphocytic leukaemia
     Dosage: UNK/HIGH-DOSE
     Route: 065

REACTIONS (1)
  - Nephropathy toxic [Unknown]
